FAERS Safety Report 18678748 (Version 1)
Quarter: 2020Q4

REPORT INFORMATION
  Report Type: Spontaneous
  Country: US (occurrence: US)
  Receive Date: 20201229
  Receipt Date: 20201229
  Transmission Date: 20210114
  Serious: Yes (Hospitalization)
  Sender: FDA-Public Use
  Company Number: US-JNJFOC-20201242942

PATIENT
  Age: 36 Year
  Sex: Female

DRUGS (3)
  1. ACXION [Concomitant]
     Indication: WEIGHT DECREASED
     Route: 065
  2. PARACETAMOL [Suspect]
     Active Substance: ACETAMINOPHEN
     Indication: PYREXIA
     Route: 048
  3. NOREX [Concomitant]
     Indication: WEIGHT DECREASED
     Route: 065

REACTIONS (4)
  - Liver injury [Unknown]
  - Drug ineffective [Unknown]
  - Pyrexia [Unknown]
  - Chills [Unknown]
